FAERS Safety Report 16406340 (Version 2)
Quarter: 2019Q2

REPORT INFORMATION
  Report Type: Spontaneous
  Country: US (occurrence: US)
  Receive Date: 20190607
  Receipt Date: 20190621
  Transmission Date: 20190711
  Serious: Yes (Hospitalization, Other)
  Sender: FDA-Public Use
  Company Number: US-GUERBET-US-20190121

PATIENT
  Age: 12 Year
  Sex: Female

DRUGS (1)
  1. DOTAREM [Suspect]
     Active Substance: GADOTERATE MEGLUMINE
     Indication: NUCLEAR MAGNETIC RESONANCE IMAGING
     Route: 042

REACTIONS (5)
  - Aspiration pleural cavity [Recovered/Resolved]
  - Asthma [Unknown]
  - Product dispensing error [Recovered/Resolved]
  - Product use in unapproved indication [Recovered/Resolved]
  - Upper respiratory tract infection [Unknown]
